FAERS Safety Report 11233365 (Version 2)
Quarter: 2015Q4

REPORT INFORMATION
  Report Type: Report from Study
  Country: CA (occurrence: CA)
  Receive Date: 20150702
  Receipt Date: 20151124
  Transmission Date: 20160304
  Serious: Yes (Other)
  Sender: FDA-Public Use
  Company Number: CA-ROCHE-1601569

PATIENT
  Age: 62 Year
  Sex: Female

DRUGS (12)
  1. METHOTREXATE [Concomitant]
     Active Substance: METHOTREXATE
  2. DIPHENHYDRAMINE HCL [Concomitant]
     Active Substance: DIPHENHYDRAMINE HYDROCHLORIDE
     Indication: PREMEDICATION
     Route: 048
     Dates: start: 20141215
  3. RITUXAN [Suspect]
     Active Substance: RITUXIMAB
     Indication: RHEUMATOID ARTHRITIS
     Dosage: DAY 1, 15, ONGOING?ON 29/JUN/2015 SHE RECEIVED LAST DOSE
     Route: 042
     Dates: start: 20141215, end: 2015
  4. PLAQUENIL [Concomitant]
     Active Substance: HYDROXYCHLOROQUINE SULFATE
  5. FOLIC ACID. [Concomitant]
     Active Substance: FOLIC ACID
  6. ACETAMINOPHEN. [Concomitant]
     Active Substance: ACETAMINOPHEN
     Indication: PREMEDICATION
     Route: 048
     Dates: start: 20141215
  7. PLAVIX [Concomitant]
     Active Substance: CLOPIDOGREL BISULFATE
  8. AVALIDE [Concomitant]
     Active Substance: HYDROCHLOROTHIAZIDE\IRBESARTAN
  9. ATENOLOL. [Concomitant]
     Active Substance: ATENOLOL
  10. METHYLPREDNISOLONE. [Concomitant]
     Active Substance: METHYLPREDNISOLONE
     Indication: PREMEDICATION
     Route: 042
     Dates: start: 20141215
  11. AMLODIPINE [Concomitant]
     Active Substance: AMLODIPINE BESYLATE
  12. D-TABS [Concomitant]
     Active Substance: CHOLECALCIFEROL

REACTIONS (2)
  - Hypoaesthesia [Recovered/Resolved]
  - Blood pressure increased [Unknown]

NARRATIVE: CASE EVENT DATE: 20150629
